FAERS Safety Report 5631495-3 (Version None)
Quarter: 2008Q1

REPORT INFORMATION
  Report Type: 
  Country: None (occurrence: None)
  Receive Date: 20080219
  Receipt Date: 20080212
  Transmission Date: 20080703
  Serious: Yes (Other)
  Sender: FDA-Public Use
  Company Number: US-ALLERGAN-0800971US

PATIENT
  Sex: Female
  Weight: 58.957 kg

DRUGS (4)
  1. BOTOX COSMETIC [Suspect]
     Indication: SKIN WRINKLING
     Dosage: 25 UNITS, UNK
     Route: 030
     Dates: start: 20080104, end: 20080104
  2. BOTOX COSMETIC [Suspect]
     Dosage: 25 UNITS, UNK
     Route: 030
     Dates: start: 20071129, end: 20071129
  3. PREDNISOLONE [Concomitant]
     Indication: DRUG USE FOR UNKNOWN INDICATION
     Route: 047
  4. DIETARY SUPPLEMENTS [Concomitant]
     Indication: DRUG USE FOR UNKNOWN INDICATION

REACTIONS (5)
  - DIZZINESS [None]
  - FATIGUE [None]
  - FEELING HOT [None]
  - PARAESTHESIA [None]
  - SWOLLEN TONGUE [None]
